FAERS Safety Report 25330730 (Version 1)
Quarter: 2025Q2

REPORT INFORMATION
  Report Type: Spontaneous
  Country: US (occurrence: US)
  Receive Date: 20250519
  Receipt Date: 20250519
  Transmission Date: 20250716
  Serious: No
  Sender: BRISTOL-MYERS SQUIBB COMPANY
  Company Number: US-BRISTOL-MYERS SQUIBB COMPANY-2025-067830

PATIENT
  Age: 48 Year
  Sex: Male

DRUGS (1)
  1. ZEPOSIA [Suspect]
     Active Substance: OZANIMOD HYDROCHLORIDE
     Indication: Proctitis ulcerative
     Route: 048
     Dates: start: 202405

REACTIONS (2)
  - Dyspnoea [Unknown]
  - Weight increased [Unknown]
